FAERS Safety Report 21918820 (Version 4)
Quarter: 2023Q1

REPORT INFORMATION
  Report Type: Report from Study
  Country: US (occurrence: US)
  Receive Date: 20230127
  Receipt Date: 20230303
  Transmission Date: 20230417
  Serious: No
  Sender: FDA-Public Use
  Company Number: US-002147023-NVSC2023US017047

PATIENT
  Sex: Male
  Weight: 77.098 kg

DRUGS (4)
  1. TREPROSTINIL [Suspect]
     Active Substance: TREPROSTINIL
     Indication: Pulmonary arterial hypertension
     Dosage: 88 UNK, CONT (NG/ KG/  MIN)
     Route: 058
     Dates: start: 20220419
  2. TREPROSTINIL [Suspect]
     Active Substance: TREPROSTINIL
     Dosage: 92 UNK, CONT (NG/ KG/ MIN)
     Route: 058
  3. TADALAFIL [Concomitant]
     Active Substance: TADALAFIL
     Indication: Product used for unknown indication
     Dosage: UNK
     Route: 065
  4. OPSUMIT [Concomitant]
     Active Substance: MACITENTAN
     Indication: Product used for unknown indication
     Dosage: UNK
     Route: 065

REACTIONS (3)
  - Catheter site bruise [Unknown]
  - Infection [Unknown]
  - Incorrect dose administered by device [Unknown]
